FAERS Safety Report 9470047 (Version 1)
Quarter: 2013Q3

REPORT INFORMATION
  Report Type: Spontaneous
  Country: US (occurrence: None)
  Receive Date: 20130820
  Receipt Date: 20130820
  Transmission Date: 20140515
  Serious: Yes (Life-Threatening, Hospitalization)
  Sender: FDA-Public Use
  Company Number: None

PATIENT
  Age: 49 Year
  Sex: Male
  Weight: 159.3 kg

DRUGS (1)
  1. TIGECYCLINE [Suspect]
     Indication: STAPHYLOCOCCAL OSTEOMYELITIS
     Dosage: Q12
     Route: 042
     Dates: start: 20130721, end: 20130804

REACTIONS (2)
  - Acute hepatic failure [None]
  - Unresponsive to stimuli [None]
